FAERS Safety Report 20229338 (Version 1)
Quarter: 2021Q4

REPORT INFORMATION
  Report Type: Spontaneous
  Country: NL (occurrence: NL)
  Receive Date: 20211225
  Receipt Date: 20211225
  Transmission Date: 20220304
  Serious: Yes (Disabling)
  Sender: FDA-Public Use
  Company Number: None

PATIENT
  Sex: Female

DRUGS (1)
  1. TAMOXIFEN [Suspect]
     Active Substance: TAMOXIFEN
     Indication: Breast cancer
     Dosage: 40 MILLIGRAM DAILY; 1X PER DAY 1 PIECE,TAMOXIFEN TABLET 40MG / BRAND NAME NOT SPECIFIED
     Route: 065
     Dates: start: 2017, end: 20211014

REACTIONS (2)
  - Dry eye [Not Recovered/Not Resolved]
  - Macular hole [Not Recovered/Not Resolved]
